FAERS Safety Report 20305590 (Version 1)
Quarter: 2022Q1

REPORT INFORMATION
  Report Type: Spontaneous
  Country: ES (occurrence: ES)
  Receive Date: 20220106
  Receipt Date: 20220106
  Transmission Date: 20220424
  Serious: Yes (Death, Hospitalization, Other)
  Sender: FDA-Public Use
  Company Number: ES-CIPLA (EU) LIMITED-2021ES06907

PATIENT
  Age: 77 Year
  Sex: Male

DRUGS (5)
  1. SUNITINIB [Suspect]
     Active Substance: SUNITINIB
     Indication: Small intestine carcinoma metastatic
     Dosage: UNK
     Dates: start: 201908
  2. SUNITINIB [Suspect]
     Active Substance: SUNITINIB
     Indication: Gastrointestinal stromal tumour
  3. SUNITINIB [Suspect]
     Active Substance: SUNITINIB
     Indication: Metastatic neoplasm
  4. IMATINIB [Suspect]
     Active Substance: IMATINIB
     Indication: Small intestine carcinoma metastatic
     Dosage: 400 MILLIGRAM, QD (400 MILLIGRAM PER DAY)
     Route: 065
     Dates: start: 2012, end: 2014
  5. IMATINIB [Suspect]
     Active Substance: IMATINIB
     Indication: Gastrointestinal stromal tumour
     Dosage: 800 MILLIGRAM, QD (800 MILLIGRAM PER DAY)
     Route: 065
     Dates: start: 2014, end: 201908

REACTIONS (9)
  - Death [Fatal]
  - Hepatic encephalopathy [Unknown]
  - Drug intolerance [Unknown]
  - Gastrointestinal disorder [Unknown]
  - Renal failure [Unknown]
  - Respiratory failure [Unknown]
  - Acute kidney injury [Unknown]
  - Acute hepatic failure [Unknown]
  - Hepatic failure [Unknown]

NARRATIVE: CASE EVENT DATE: 20190801
